FAERS Safety Report 17777845 (Version 2)
Quarter: 2023Q1

REPORT INFORMATION
  Report Type: Report from Study
  Country: US (occurrence: US)
  Receive Date: 20200513
  Receipt Date: 20230328
  Transmission Date: 20230418
  Serious: No
  Sender: FDA-Public Use
  Company Number: US-ACADIA PHARMACEUTICALS INC.-ACA-2020-PIM-001292

PATIENT
  Sex: Female

DRUGS (1)
  1. NUPLAZID [Suspect]
     Active Substance: PIMAVANSERIN TARTRATE
     Indication: Parkinson^s disease psychosis
     Dosage: 34 MILLIGRAM, QD
     Route: 048
     Dates: start: 201903

REACTIONS (6)
  - Dysphagia [Unknown]
  - Chest discomfort [Unknown]
  - Urinary tract infection [Recovered/Resolved]
  - Gait disturbance [Recovered/Resolved]
  - Fall [Recovered/Resolved]
  - Hallucination [Recovered/Resolved]
